FAERS Safety Report 9621620 (Version 3)
Quarter: 2014Q3

REPORT INFORMATION
  Report Type: Spontaneous
  Country: US (occurrence: US)
  Receive Date: 20131015
  Receipt Date: 20140717
  Transmission Date: 20150326
  Serious: Yes (Death, Hospitalization, Other)
  Sender: FDA-Public Use
  Company Number: US-009507513-1310USA005996

PATIENT
  Sex: Female
  Weight: 57.6 kg

DRUGS (2)
  1. JANUVIA [Suspect]
     Active Substance: SITAGLIPTIN PHOSPHATE
     Indication: TYPE 2 DIABETES MELLITUS
     Dosage: 50 MG, QD
     Route: 048
     Dates: start: 20091001, end: 201007
  2. JANUVIA [Suspect]
     Active Substance: SITAGLIPTIN PHOSPHATE
     Indication: DIABETES MELLITUS INADEQUATE CONTROL

REACTIONS (8)
  - Pancreatic carcinoma [Fatal]
  - Blood potassium decreased [Recovered/Resolved]
  - International normalised ratio increased [Recovered/Resolved]
  - Hiatus hernia [Unknown]
  - Dysarthria [Unknown]
  - Dyspnoea exertional [Unknown]
  - Treatment noncompliance [Unknown]
  - Constipation [Unknown]

NARRATIVE: CASE EVENT DATE: 200911
